FAERS Safety Report 15640444 (Version 4)
Quarter: 2021Q4

REPORT INFORMATION
  Report Type: Spontaneous
  Country: JP (occurrence: JP)
  Receive Date: 20181120
  Receipt Date: 20211125
  Transmission Date: 20220303
  Serious: Yes (Other)
  Sender: FDA-Public Use
  Company Number: JP-BRISTOL-MYERS SQUIBB COMPANY-BMS-2018-109515

PATIENT
  Sex: Male
  Weight: 40 kg

DRUGS (2)
  1. OPDIVO [Suspect]
     Active Substance: NIVOLUMAB
     Indication: Non-small cell lung cancer recurrent
     Dosage: 3 MILLIGRAM/KILOGRAM
     Route: 041
     Dates: start: 20180705, end: 20180806
  2. PHYSISALZ PL [Concomitant]
     Indication: Product used for unknown indication
     Dosage: 100 MILLILITER
     Route: 041
     Dates: start: 20180705, end: 20180806

REACTIONS (4)
  - Amaurosis fugax [Recovered/Resolved]
  - Pneumonia bacterial [Recovered/Resolved]
  - Blindness transient [Unknown]
  - Circulatory collapse [Unknown]

NARRATIVE: CASE EVENT DATE: 20180712
